FAERS Safety Report 25757315 (Version 3)
Quarter: 2025Q4

REPORT INFORMATION
  Report Type: Spontaneous
  Country: US (occurrence: US)
  Receive Date: 20250903
  Receipt Date: 20251128
  Transmission Date: 20260118
  Serious: No
  Sender: TEVA
  Company Number: US-TEVA-VS-3286040

PATIENT
  Age: 56 Year
  Sex: Female

DRUGS (6)
  1. TREPROSTINIL [Suspect]
     Active Substance: TREPROSTINIL
     Indication: Pulmonary arterial hypertension
     Dosage: FREQUENCY: CONTINUOUS; DOSE: 20 NG/KG/MIN,MDV
     Route: 041
     Dates: start: 202410, end: 202507
  2. OPSUMIT [Concomitant]
     Active Substance: MACITENTAN
     Indication: Product used for unknown indication
  3. ORENITRAM [Suspect]
     Active Substance: TREPROSTINIL
     Indication: Pulmonary arterial hypertension
     Dosage: USING 2 TABLETS OF 1 MG AND 1 TABLET OF 0.125 MG TO MAKE HER DOSE OF 2.125 MG TID
     Route: 048
     Dates: start: 202508, end: 2025
  4. ORENITRAM [Suspect]
     Active Substance: TREPROSTINIL
     Indication: Pulmonary arterial hypertension
     Route: 048
     Dates: start: 2025, end: 202509
  5. ORENITRAM [Suspect]
     Active Substance: TREPROSTINIL
     Indication: Pulmonary arterial hypertension
     Dosage: TIME INTERVAL: 0.33333333 DAYS
     Route: 048
     Dates: start: 202509
  6. TREPROSTINIL [Suspect]
     Active Substance: TREPROSTINIL
     Indication: Pulmonary arterial hypertension
     Dosage: TIME INTERVAL: 0.33333333 DAYS
     Route: 048
     Dates: start: 202508, end: 202508

REACTIONS (4)
  - Pain in extremity [Unknown]
  - Dysstasia [Unknown]
  - Migraine [Unknown]
  - Insomnia [Unknown]

NARRATIVE: CASE EVENT DATE: 20241001
